FAERS Safety Report 16141909 (Version 1)
Quarter: 2019Q2

REPORT INFORMATION
  Report Type: Spontaneous
  Country: FR (occurrence: FR)
  Receive Date: 20190401
  Receipt Date: 20190401
  Transmission Date: 20190711
  Serious: Yes (Hospitalization)
  Sender: FDA-Public Use
  Company Number: FR-PFIZER INC-2019132220

PATIENT
  Age: 17 Year
  Sex: Male

DRUGS (1)
  1. LYRICA [Suspect]
     Active Substance: PREGABALIN
     Dosage: 13 DF, 1X/DAY
     Route: 048

REACTIONS (4)
  - Drug abuse [Unknown]
  - Intentional overdose [Recovered/Resolved]
  - Intentional product misuse [Unknown]
  - Dyskinesia [Recovered/Resolved]
